FAERS Safety Report 6064912-8 (Version None)
Quarter: 2009Q1

REPORT INFORMATION
  Report Type: 
  Country: None (occurrence: None)
  Receive Date: 20090204
  Receipt Date: 20090128
  Transmission Date: 20090719
  Serious: Yes (Other)
  Sender: FDA-Public Use
  Company Number: US-JNJFOC-20060906236

PATIENT
  Sex: Female
  Weight: 97.98 kg

DRUGS (9)
  1. RISPERDAL [Suspect]
     Indication: SCHIZOAFFECTIVE DISORDER
     Route: 048
  2. RISPERDAL [Suspect]
     Indication: NIGHTMARE
     Route: 048
  3. RISPERDAL [Suspect]
     Indication: SLEEP DISORDER THERAPY
     Route: 048
  4. RISPERDAL [Suspect]
     Indication: DEPRESSION
     Route: 048
  5. LEXAPRO [Concomitant]
  6. LEVAQUIN [Concomitant]
     Route: 065
  7. NITREX [Concomitant]
     Route: 065
  8. ASPIRIN [Concomitant]
     Route: 065
  9. METAGLIP [Concomitant]
     Route: 065

REACTIONS (1)
  - TYPE 2 DIABETES MELLITUS [None]
